FAERS Safety Report 9193151 (Version 1)
Quarter: 2013Q1

REPORT INFORMATION
  Report Type: Spontaneous
  Country: US (occurrence: US)
  Receive Date: 20130327
  Receipt Date: 20130327
  Transmission Date: 20140127
  Serious: No
  Sender: FDA-Public Use
  Company Number: US-PFIZER INC-2013098536

PATIENT
  Age: 63 Year
  Sex: Male
  Weight: 99.77 kg

DRUGS (2)
  1. CELEBREX [Suspect]
     Indication: EXOSTOSIS
     Dosage: 200 MG, 1X/DAY
     Route: 048
     Dates: end: 20130101
  2. CELEBREX [Suspect]
     Indication: ARTHRITIS

REACTIONS (2)
  - Pain [Unknown]
  - Insomnia [Unknown]
